FAERS Safety Report 4677473-2 (Version None)
Quarter: 2005Q2

REPORT INFORMATION
  Report Type: 
  Country: None (occurrence: None)
  Receive Date: 20050531
  Receipt Date: 20050311
  Transmission Date: 20051028
  Serious: Yes (Other)
  Sender: FDA-Public Use
  Company Number: 200511975US

PATIENT
  Sex: Female
  Weight: 113.2 kg

DRUGS (4)
  1. ALLEGRA [Suspect]
     Indication: MULTIPLE ALLERGIES
     Route: 048
     Dates: start: 20050407, end: 20050707
  2. BUPROPION [Suspect]
     Indication: MAJOR DEPRESSION
     Dates: start: 20040114, end: 20050707
  3. CELEXA [Suspect]
     Indication: DEPRESSION
     Route: 048
     Dates: start: 20020906, end: 20050707
  4. ZANTAC [Suspect]
     Indication: GASTROOESOPHAGEAL REFLUX DISEASE
     Route: 048
     Dates: start: 20030520, end: 20050707

REACTIONS (3)
  - DRUG EXPOSURE DURING PREGNANCY [None]
  - HAEMORRHAGE [None]
  - UMBILICAL CORD ABNORMALITY [None]
